FAERS Safety Report 24805484 (Version 1)
Quarter: 2025Q1

REPORT INFORMATION
  Report Type: Spontaneous
  Country: US (occurrence: US)
  Receive Date: 20250103
  Receipt Date: 20250103
  Transmission Date: 20250409
  Serious: Yes (Other)
  Sender: LUPIN
  Company Number: US-LUPIN PHARMACEUTICALS INC.-2024-12232

PATIENT

DRUGS (2)
  1. AMLODIPINE BESYLATE [Suspect]
     Active Substance: AMLODIPINE BESYLATE
     Indication: Product used for unknown indication
     Route: 065
  2. AMLODIPINE BESYLATE [Suspect]
     Active Substance: AMLODIPINE BESYLATE
     Route: 065

REACTIONS (8)
  - Heart rate increased [Unknown]
  - Balance disorder [Unknown]
  - Vision blurred [Unknown]
  - Head discomfort [Unknown]
  - Crepitations [Unknown]
  - Disturbance in attention [Unknown]
  - Flushing [Unknown]
  - Product formulation issue [Unknown]
